FAERS Safety Report 7568392-2 (Version None)
Quarter: 2011Q2

REPORT INFORMATION
  Report Type: 
  Country: None (occurrence: None)
  Receive Date: 20110623
  Receipt Date: 20110610
  Transmission Date: 20111010
  Serious: Yes (Other)
  Sender: FDA-Public Use
  Company Number: B0727475A

PATIENT
  Sex: Male

DRUGS (3)
  1. ACITRETIN [Suspect]
     Indication: PSORIASIS
     Dosage: 50MG PER DAY
     Dates: start: 20080101
  2. OLMESARTAN MEDOXOMIL [Concomitant]
     Route: 065
  3. DIPRODERM [Concomitant]
     Indication: PSORIASIS
     Route: 065

REACTIONS (3)
  - RETINAL VASCULAR THROMBOSIS [None]
  - VISUAL IMPAIRMENT [None]
  - RETINAL HAEMORRHAGE [None]
